APPROVED DRUG PRODUCT: MEMANTINE HYDROCHLORIDE
Active Ingredient: MEMANTINE HYDROCHLORIDE
Strength: 21MG
Dosage Form/Route: CAPSULE, EXTENDED RELEASE;ORAL
Application: A205365 | Product #003
Applicant: ANI PHARMACEUTICALS INC
Approved: Feb 28, 2020 | RLD: No | RS: No | Type: DISCN